FAERS Safety Report 17501163 (Version 4)
Quarter: 2020Q3

REPORT INFORMATION
  Report Type: Report from Study
  Country: US (occurrence: US)
  Receive Date: 20200305
  Receipt Date: 20200804
  Transmission Date: 20201102
  Serious: Yes (Hospitalization, Other)
  Sender: FDA-Public Use
  Company Number: US-GLAXOSMITHKLINE-US2020AMR037722

PATIENT
  Sex: Female

DRUGS (2)
  1. NIRAPARIB [Suspect]
     Active Substance: NIRAPARIB
     Indication: OVARIAN CANCER
     Dosage: 200 MG, QD
  2. NIRAPARIB [Suspect]
     Active Substance: NIRAPARIB
     Dosage: 200 MG, QD

REACTIONS (9)
  - Asthenia [Unknown]
  - Off label use [Unknown]
  - Taste disorder [Unknown]
  - Hepatic enzyme increased [Unknown]
  - Dehydration [Unknown]
  - Intestinal obstruction [Unknown]
  - Decreased appetite [Unknown]
  - Dry mouth [Unknown]
  - Drug ineffective [Unknown]
